FAERS Safety Report 9896746 (Version 1)
Quarter: 2014Q1

REPORT INFORMATION
  Report Type: Spontaneous
  Country: US (occurrence: US)
  Receive Date: 20140213
  Receipt Date: 20140213
  Transmission Date: 20141002
  Serious: No
  Sender: FDA-Public Use
  Company Number: US-BRISTOL-MYERS SQUIBB COMPANY-19178458

PATIENT
  Age: 41 Year
  Sex: Female
  Weight: 94.78 kg

DRUGS (12)
  1. ABATACEPT SUBQ INJECTION 125MG/ML [Suspect]
     Indication: RHEUMATOID ARTHRITIS
     Dosage: STRENGTH:125MG/ML
     Route: 058
  2. XELJANZ [Concomitant]
     Dosage: TABS.
  3. VITAMIN D [Concomitant]
     Dosage: 1DF=1000 UNITS.?CAPS.
  4. METHOTREXATE [Concomitant]
     Dosage: 1DF=5OMG/2ML.?INJ.
  5. TRAMADOL HCL [Concomitant]
     Dosage: TABS.
  6. OMEPRAZOLE [Concomitant]
     Dosage: CAPS.
  7. PLAQUENIL [Concomitant]
     Dosage: TABS.
  8. LOSARTAN POTASSIUM [Concomitant]
     Dosage: TABS.
  9. FOLIC ACID [Concomitant]
     Dosage: TABS.
  10. MULTIVITAMIN [Concomitant]
     Dosage: CAPS.
  11. ESTRADIOL VALERATE [Concomitant]
     Dosage: TABS.
  12. VISTARIL [Concomitant]
     Dosage: CAPS.

REACTIONS (1)
  - Drug ineffective [Unknown]
